FAERS Safety Report 11573958 (Version 4)
Quarter: 2016Q1

REPORT INFORMATION
  Report Type: Spontaneous
  Country: US (occurrence: US)
  Receive Date: 20150930
  Receipt Date: 20160120
  Transmission Date: 20160525
  Serious: Yes (Hospitalization)
  Sender: FDA-Public Use
  Company Number: US-ROCHE-1640147

PATIENT
  Sex: Male
  Weight: 84.9 kg

DRUGS (1)
  1. ESBRIET [Suspect]
     Active Substance: PIRFENIDONE
     Indication: IDIOPATHIC PULMONARY FIBROSIS
     Dosage: TOTAL-2403 MG DAILY; WITH FOOD
     Route: 048
     Dates: start: 20150518

REACTIONS (7)
  - Cardiac disorder [Unknown]
  - Fluid retention [Unknown]
  - Fatigue [Unknown]
  - Dyspnoea [Unknown]
  - Renal disorder [Unknown]
  - Oesophageal disorder [Unknown]
  - Oesophageal achalasia [Unknown]
